FAERS Safety Report 18707386 (Version 1)
Quarter: 2021Q1

REPORT INFORMATION
  Report Type: Spontaneous
  Country: US (occurrence: US)
  Receive Date: 20210106
  Receipt Date: 20210106
  Transmission Date: 20210419
  Serious: No
  Sender: FDA-Public Use
  Company Number: US-PERRIGO-20US013796

PATIENT
  Age: 29 Year
  Sex: Male
  Weight: 65.76 kg

DRUGS (2)
  1. MIGRAINE FORMULA [Suspect]
     Active Substance: ACETAMINOPHEN\ASPIRIN\CAFFEINE
     Indication: MIGRAINE
     Dosage: 4 TABLETS, SINGLE
     Route: 048
     Dates: start: 20200921, end: 20200921
  2. MIGRAINE FORMULA [Suspect]
     Active Substance: ACETAMINOPHEN\ASPIRIN\CAFFEINE
     Dosage: 3 TABLETS IN THE MORNING, 2 TABLETS AT LUNCH
     Route: 048
     Dates: start: 20200922, end: 20200922

REACTIONS (3)
  - Overdose [Recovered/Resolved]
  - Dizziness [Recovered/Resolved]
  - Drug ineffective [Unknown]

NARRATIVE: CASE EVENT DATE: 20200921
